FAERS Safety Report 4582360-4 (Version None)
Quarter: 2005Q1

REPORT INFORMATION
  Report Type: 
  Country: None (occurrence: None)
  Receive Date: 20050119
  Receipt Date: 20031208
  Transmission Date: 20050727
  Serious: Yes (Death)
  Sender: FDA-Public Use
  Company Number: US-JNJFOC-20031004503

PATIENT
  Age: 70 Year
  Sex: Female

DRUGS (1)
  1. DOXIL [Suspect]
     Indication: LUNG NEOPLASM MALIGNANT
     Dosage: INTRAVENOUS
     Route: 042

REACTIONS (1)
  - LUNG NEOPLASM MALIGNANT [None]
